FAERS Safety Report 23604668 (Version 2)
Quarter: 2025Q2

REPORT INFORMATION
  Report Type: Spontaneous
  Country: PT (occurrence: PT)
  Receive Date: 20240307
  Receipt Date: 20250618
  Transmission Date: 20250717
  Serious: Yes (Life-Threatening, Hospitalization, Other)
  Sender: SANDOZ
  Company Number: PT-TEVA-VS-3154719

PATIENT
  Age: 79 Year
  Sex: Female

DRUGS (2)
  1. FLUCLOXACILLIN [Suspect]
     Active Substance: FLUCLOXACILLIN
     Indication: Intervertebral discitis
     Dosage: 12 G, QD
     Route: 042
  2. ACETAMINOPHEN [Interacting]
     Active Substance: ACETAMINOPHEN
     Indication: Symptomatic treatment
     Dosage: 1 G, Q8H
     Route: 065

REACTIONS (3)
  - Altered state of consciousness [Unknown]
  - Drug interaction [Unknown]
  - Metabolic acidosis [Unknown]
